FAERS Safety Report 5236515-6 (Version None)
Quarter: 2007Q1

REPORT INFORMATION
  Report Type: 
  Country: None (occurrence: None)
  Receive Date: 20070208
  Receipt Date: 20070126
  Transmission Date: 20070707
  Serious: Yes (Death)
  Sender: FDA-Public Use
  Company Number: 15590

PATIENT
  Age: 4 Year
  Sex: Female

DRUGS (10)
  1. CARBOPLATIN [Suspect]
     Indication: NEUROBLASTOMA
     Dosage: 750 MG/M2  OTH
  2. ETOPOSIDE [Suspect]
     Indication: NEUROBLASTOMA
     Dosage: 175 MG/M2 DAILY
  3. CISPLATIN [Suspect]
     Indication: NEUROBLASTOMA
     Dosage: 80 MG/M2 OTH
  4. DOXORUBICIN HCL [Suspect]
     Dosage: 25 MG/M2 DAILY
  5. DACARBAZINE [Suspect]
  6. ONCOVIN [Suspect]
     Indication: NEUROBLASTOMA
     Dosage: 1.5 MG/M2 OTH
  7. CYCLOPHOSPHAMIDE [Suspect]
     Indication: NEUROBLASTOMA
     Dosage: 1.05 G/M2 ONCE
  8. BUSULFAN [Suspect]
     Dosage: 150 MG/M2 OTH
  9. MELPHALAN [Suspect]
     Dosage: 140 MG/M2
  10. CHLORMETHINE [Suspect]

REACTIONS (7)
  - ACUTE MYELOID LEUKAEMIA [None]
  - DRUG TOXICITY [None]
  - GENE MUTATION [None]
  - INFECTION [None]
  - NEOPLASM RECURRENCE [None]
  - NEUROBLASTOMA [None]
  - STEM CELL TRANSPLANT [None]
